FAERS Safety Report 13639364 (Version 1)
Quarter: 2017Q2

REPORT INFORMATION
  Report Type: Spontaneous
  Country: US (occurrence: US)
  Receive Date: 20170609
  Receipt Date: 20170609
  Transmission Date: 20170830
  Serious: No
  Sender: FDA-Public Use
  Company Number: US-ROCHE-1374085

PATIENT
  Sex: Female

DRUGS (3)
  1. KLONOPIN [Suspect]
     Active Substance: CLONAZEPAM
     Indication: PRODUCT USED FOR UNKNOWN INDICATION
     Dosage: IN DIVIDED DOSES FOR 9 YEARS
     Route: 065
  2. ABILIFY [Concomitant]
     Active Substance: ARIPIPRAZOLE
  3. KLONOPIN [Suspect]
     Active Substance: CLONAZEPAM
     Dosage: 5-6 MG DAILY
     Route: 065
     Dates: start: 201310

REACTIONS (4)
  - Anxiety [Unknown]
  - Panic disorder [Unknown]
  - Panic attack [Unknown]
  - Drug use disorder [Unknown]
